FAERS Safety Report 6157839-4 (Version None)
Quarter: 2009Q2

REPORT INFORMATION
  Report Type: 
  Country: None (occurrence: None)
  Receive Date: 20090414
  Receipt Date: 20090330
  Transmission Date: 20091009
  Serious: Yes (Other)
  Sender: FDA-Public Use
  Company Number: 2009S1005659

PATIENT
  Age: 59 Year
  Sex: Female

DRUGS (1)
  1. PAROXETINE HCL [Suspect]
     Indication: DEPRESSION
     Dates: start: 20090101

REACTIONS (15)
  - AGITATION [None]
  - ANXIETY [None]
  - ARTHRALGIA [None]
  - CHEST PAIN [None]
  - DISTURBANCE IN ATTENTION [None]
  - DRUG INEFFECTIVE [None]
  - DYSPNOEA [None]
  - HEADACHE [None]
  - MEMORY IMPAIRMENT [None]
  - PARAESTHESIA [None]
  - SLEEP DISORDER [None]
  - TREMOR [None]
  - UNEVALUABLE EVENT [None]
  - URINARY INCONTINENCE [None]
  - VISUAL ACUITY REDUCED [None]
